FAERS Safety Report 6341151-4 (Version None)
Quarter: 2009Q3

REPORT INFORMATION
  Report Type: 
  Country: None (occurrence: None)
  Receive Date: 20090904
  Receipt Date: 20090330
  Transmission Date: 20100115
  Serious: No
  Sender: FDA-Public Use
  Company Number: A0769790A

PATIENT
  Age: 67 Year
  Sex: Male
  Weight: 98.6 kg

DRUGS (7)
  1. REQUIP [Suspect]
     Indication: RESTLESS LEGS SYNDROME
     Dosage: 1MG PER DAY
     Route: 048
     Dates: start: 20080901
  2. LISINOPRIL [Concomitant]
  3. SPIRONOLACTONE [Concomitant]
  4. COREG [Concomitant]
  5. AMIODARONE [Concomitant]
  6. NIACIN [Concomitant]
  7. ASPIRIN [Concomitant]
     Route: 048

REACTIONS (1)
  - RESTLESS LEGS SYNDROME [None]
